FAERS Safety Report 23050513 (Version 1)
Quarter: 2023Q4

REPORT INFORMATION
  Report Type: Spontaneous
  Country: SI (occurrence: SI)
  Receive Date: 20231010
  Receipt Date: 20231010
  Transmission Date: 20240110
  Serious: Yes (Other)
  Sender: FDA-Public Use
  Company Number: SI-EMA-DD-20230928-7182749-102416

PATIENT
  Age: 42 Year
  Sex: Female

DRUGS (7)
  1. DOCETAXEL [Suspect]
     Active Substance: DOCETAXEL
     Indication: Breast cancer
     Dosage: UNK, QID
     Route: 065
     Dates: start: 20131009
  2. EPIRUBICIN [Suspect]
     Active Substance: EPIRUBICIN
     Indication: Breast cancer
     Dosage: UNK, QID
     Route: 065
     Dates: start: 20131009
  3. LETROZOLE [Suspect]
     Active Substance: LETROZOLE
     Indication: Product used for unknown indication
     Dosage: 2.5 MG
     Dates: start: 20190702, end: 20191122
  4. LETROZOLE [Suspect]
     Active Substance: LETROZOLE
     Dosage: 1 DF, QD
     Route: 065
     Dates: start: 20210804
  5. FLUOROURACIL [Suspect]
     Active Substance: FLUOROURACIL
     Indication: Breast cancer
     Dosage: UNK, QID
     Dates: start: 20131009
  6. KISQALI [Suspect]
     Active Substance: RIBOCICLIB
     Indication: Breast cancer metastatic
     Dosage: 600 MG, QD (600 MG, QD, FOR 3 WEEKS, FOLLOWED BY A BREAK OF 1 WEEK)
     Route: 065
     Dates: start: 20210804
  7. CYCLOPHOSPHAMIDE [Concomitant]
     Active Substance: CYCLOPHOSPHAMIDE
     Indication: Breast cancer
     Dosage: UNK, QID
     Route: 065
     Dates: start: 20131009

REACTIONS (5)
  - Lymphangiosis carcinomatosa [Unknown]
  - Neutropenia [Recovered/Resolved]
  - Carcinoma in situ [Unknown]
  - Malignant neoplasm progression [Unknown]
  - Breast cancer [Unknown]
